FAERS Safety Report 8318015-X (Version None)
Quarter: 2012Q2

REPORT INFORMATION
  Report Type: 
  Country: None (occurrence: None)
  Receive Date: 20120427
  Receipt Date: 20120424
  Transmission Date: 20120825
  Serious: Yes (Death)
  Sender: FDA-Public Use
  Company Number: IT-BAYER-2012-000127

PATIENT
  Age: 86 Year
  Sex: Female

DRUGS (6)
  1. CIPROFLOXACIN HCL [Suspect]
     Indication: URINARY TRACT INFECTION
     Dosage: 500 MG, BID
     Route: 048
     Dates: start: 20111025, end: 20111101
  2. ALENDRONIC ACID [Concomitant]
     Dosage: 70 MG, UNK
     Route: 048
  3. VENLAFAXINE [Suspect]
     Indication: COGNITIVE DISORDER
     Dosage: 75 MG, QD
     Route: 048
     Dates: start: 20111013, end: 20111116
  4. ALLOPURINOL [Concomitant]
     Dosage: 300 MG, UNK
     Route: 048
  5. EFFEXOR [Suspect]
     Indication: COGNITIVE DISORDER
  6. METHOTREXATE [Concomitant]
     Dosage: 50 MG, UNK

REACTIONS (3)
  - PANCYTOPENIA [None]
  - AGRANULOCYTOSIS [None]
  - THROMBOCYTOPENIA [None]
